FAERS Safety Report 18233491 (Version 2)
Quarter: 2020Q3

REPORT INFORMATION
  Report Type: Spontaneous
  Country: CA (occurrence: CA)
  Receive Date: 20200904
  Receipt Date: 20200924
  Transmission Date: 20201103
  Serious: Yes (Other)
  Sender: FDA-Public Use
  Company Number: CA-ELI_LILLY_AND_COMPANY-CA202008011966

PATIENT
  Age: 58 Year
  Sex: Female

DRUGS (6)
  1. HUMALOG KWIKPEN [Suspect]
     Active Substance: INSULIN LISPRO
     Dosage: 14 U, UNKNOWN
     Route: 058
  2. OZEMPIC [Concomitant]
     Active Substance: SEMAGLUTIDE
     Indication: PRODUCT USED FOR UNKNOWN INDICATION
  3. METFORMIN [Concomitant]
     Active Substance: METFORMIN HYDROCHLORIDE
     Indication: PRODUCT USED FOR UNKNOWN INDICATION
  4. RAMPRIL [Concomitant]
     Active Substance: RAMIPRIL
     Indication: PRODUCT USED FOR UNKNOWN INDICATION
  5. HUMALOG KWIKPEN [Suspect]
     Active Substance: INSULIN LISPRO
     Indication: DIABETES MELLITUS
     Dosage: UNK UNK, UNKNOWN
     Route: 065
  6. TRESIBA [Concomitant]
     Active Substance: INSULIN DEGLUDEC
     Indication: PRODUCT USED FOR UNKNOWN INDICATION

REACTIONS (5)
  - Eyelid thickening [Unknown]
  - Drug ineffective [Not Recovered/Not Resolved]
  - Blood glucose increased [Unknown]
  - Wrong technique in product usage process [Unknown]
  - Blood glucose increased [Unknown]

NARRATIVE: CASE EVENT DATE: 202006
